FAERS Safety Report 11934363 (Version 1)
Quarter: 2016Q1

REPORT INFORMATION
  Report Type: Spontaneous
  Country: US (occurrence: US)
  Receive Date: 20160121
  Receipt Date: 20160121
  Transmission Date: 20160526
  Serious: No
  Sender: FDA-Public Use
  Company Number: US-PERRIGO-15US009773

PATIENT
  Age: 3 Year
  Sex: Male

DRUGS (2)
  1. ACETAMINOPHEN-ASPIRIN-CAFFEINE 1T1 [Suspect]
     Active Substance: ACETAMINOPHEN\ASPIRIN\CAFFEINE
     Indication: ACCIDENTAL EXPOSURE TO PRODUCT BY CHILD
     Dosage: APPROXIMATELY 2 TABLETS, SINGLE
     Route: 048
     Dates: start: 20150807, end: 20150807
  2. TUMS                               /00193601/ [Concomitant]
     Active Substance: CALCIUM CARBONATE\MAGNESIUM CARBONATE\MAGNESIUM TRISILICATE
     Indication: ACCIDENTAL EXPOSURE TO PRODUCT BY CHILD
     Dosage: UNK
     Route: 048
     Dates: start: 20150807, end: 20050107

REACTIONS (2)
  - Accidental exposure to product by child [Recovered/Resolved]
  - No adverse event [Recovered/Resolved]

NARRATIVE: CASE EVENT DATE: 20150807
